FAERS Safety Report 6509659-6 (Version None)
Quarter: 2009Q4

REPORT INFORMATION
  Report Type: 
  Country: None (occurrence: None)
  Receive Date: 20091222
  Receipt Date: 20091216
  Transmission Date: 20100525
  Serious: Yes (Life-Threatening, Hospitalization, Other)
  Sender: FDA-Public Use
  Company Number: US-CELGENEUS-163-CCAZA-09051757

PATIENT
  Sex: Male
  Weight: 69.5 kg

DRUGS (41)
  1. AZACITIDINE INJECTABLE [Suspect]
     Route: 048
     Dates: start: 20091202, end: 20091208
  2. AZACITIDINE INJECTABLE [Suspect]
     Route: 058
     Dates: start: 20090508, end: 20090514
  3. LEVOTHYROXINE SODIUM [Concomitant]
     Indication: HYPOTHYROIDISM
     Route: 048
     Dates: start: 20010101
  4. PRAVASTATIN [Concomitant]
     Route: 048
     Dates: start: 20020101
  5. EZETIMIBE [Concomitant]
     Route: 048
     Dates: start: 20020101
  6. TAMSULOSIN HCL [Concomitant]
     Route: 048
     Dates: start: 20040101
  7. FISH OIL [Concomitant]
     Route: 048
  8. COQ10 [Concomitant]
     Route: 048
  9. ASCORBIC ACID [Concomitant]
     Route: 048
  10. VITAMIN B COMPLEX CAP [Concomitant]
     Route: 048
  11. ASPIRIN [Concomitant]
     Indication: PROPHYLAXIS
     Route: 048
     Dates: start: 20090404
  12. CYCLOBENZAPRINE [Concomitant]
     Route: 048
     Dates: start: 20090401
  13. CYCLOBENZAPRINE [Concomitant]
     Indication: NECK PAIN
  14. BUTALBITAL [Concomitant]
     Indication: HEADACHE
     Dosage: 1-2 TABLETS
     Route: 048
     Dates: start: 20090301
  15. ALLEGRA [Concomitant]
     Indication: DRUG USE FOR UNKNOWN INDICATION
     Route: 048
     Dates: start: 20090501
  16. TRAMADOL HCL [Concomitant]
     Indication: NECK PAIN
     Dosage: 1-2 TABLETS
     Route: 048
     Dates: start: 20090511
  17. TRAMADOL HCL [Concomitant]
  18. ONDANSETRON [Concomitant]
     Indication: NAUSEA
     Route: 048
     Dates: start: 20090508
  19. ONDANSETRON [Concomitant]
     Indication: VOMITING
  20. WHOLE BLOOD [Concomitant]
     Indication: DRUG USE FOR UNKNOWN INDICATION
     Route: 051
  21. BROAD SPECTRUM ANTIBIOTICS [Concomitant]
     Indication: DRUG USE FOR UNKNOWN INDICATION
     Route: 065
     Dates: start: 20090501
  22. PLATELETS [Concomitant]
     Indication: THROMBOCYTOPENIA
     Route: 051
     Dates: start: 20090501
  23. PLATELETS [Concomitant]
     Indication: COAGULOPATHY
  24. FRESH FROZEN PLASMA [Concomitant]
     Indication: THROMBOCYTOPENIA
     Route: 051
     Dates: start: 20090501
  25. FRESH FROZEN PLASMA [Concomitant]
     Indication: COAGULOPATHY
  26. VITAMIN K TAB [Concomitant]
     Indication: THROMBOCYTOPENIA
     Route: 065
     Dates: start: 20090501
  27. VITAMIN K TAB [Concomitant]
     Indication: COAGULOPATHY
     Route: 051
     Dates: start: 20090601, end: 20090603
  28. VITAMIN K TAB [Concomitant]
  29. FILGRASTIM [Concomitant]
     Indication: BLOOD COUNT ABNORMAL
     Dosage: 300-480MCG
     Route: 058
     Dates: start: 20090527
  30. FUROSEMIDE [Concomitant]
     Route: 048
     Dates: start: 20090524
  31. ALBUMIN (HUMAN) [Concomitant]
     Route: 065
     Dates: start: 20090524
  32. INSULIN [Concomitant]
     Dosage: 4-8 IU
     Route: 058
     Dates: start: 20090601
  33. PHOSPHORUS REPLACEMENT [Concomitant]
     Route: 065
     Dates: start: 20090601
  34. LEVAQUIN [Concomitant]
     Indication: INFECTION PROPHYLAXIS
     Route: 048
     Dates: start: 20090610
  35. HYDROXYZINE [Concomitant]
     Indication: RASH
     Dosage: 10-25MG
     Route: 048
     Dates: start: 20090601
  36. LORATADINE [Concomitant]
     Indication: RASH
     Route: 048
     Dates: start: 20090601
  37. ZYRTEC-D 12 HOUR [Concomitant]
     Indication: SINUSITIS
     Route: 048
     Dates: start: 20090511
  38. SYNTHROID [Concomitant]
     Indication: DRUG USE FOR UNKNOWN INDICATION
     Route: 065
  39. PRAVACHOL [Concomitant]
     Indication: DRUG USE FOR UNKNOWN INDICATION
     Route: 065
  40. ZETIA [Concomitant]
     Indication: DRUG USE FOR UNKNOWN INDICATION
     Route: 065
  41. XOPENEX [Concomitant]
     Indication: DRUG USE FOR UNKNOWN INDICATION
     Route: 065

REACTIONS (12)
  - ABDOMINAL DISTENSION [None]
  - CAECITIS [None]
  - CELLULITIS [None]
  - HYPERNATRAEMIA [None]
  - HYPONATRAEMIA [None]
  - HYPOXIA [None]
  - NEUTROPENIC COLITIS [None]
  - OEDEMA PERIPHERAL [None]
  - PLEURAL EFFUSION [None]
  - PNEUMONIA [None]
  - RASH [None]
  - RENAL FAILURE [None]
